FAERS Safety Report 25549277 (Version 1)
Quarter: 2025Q3

REPORT INFORMATION
  Report Type: Spontaneous
  Country: EU (occurrence: EU)
  Receive Date: 20250714
  Receipt Date: 20250714
  Transmission Date: 20251021
  Serious: Yes (Life-Threatening, Other)
  Sender: MYLAN
  Company Number: None

PATIENT
  Age: 20 Year
  Sex: Female

DRUGS (16)
  1. PREGABALIN [Suspect]
     Active Substance: PREGABALIN
     Indication: Product used for unknown indication
     Dates: start: 20210722, end: 20210722
  2. PREGABALIN [Suspect]
     Active Substance: PREGABALIN
     Route: 048
     Dates: start: 20210722, end: 20210722
  3. PREGABALIN [Suspect]
     Active Substance: PREGABALIN
     Route: 048
     Dates: start: 20210722, end: 20210722
  4. PREGABALIN [Suspect]
     Active Substance: PREGABALIN
     Dates: start: 20210722, end: 20210722
  5. MIANSERIN [Suspect]
     Active Substance: MIANSERIN
     Indication: Product used for unknown indication
     Dates: start: 20210722, end: 20210722
  6. MIANSERIN [Suspect]
     Active Substance: MIANSERIN
     Route: 048
     Dates: start: 20210722, end: 20210722
  7. MIANSERIN [Suspect]
     Active Substance: MIANSERIN
     Route: 048
     Dates: start: 20210722, end: 20210722
  8. MIANSERIN [Suspect]
     Active Substance: MIANSERIN
     Dates: start: 20210722, end: 20210722
  9. CITALOPRAM [Suspect]
     Active Substance: CITALOPRAM
     Indication: Product used for unknown indication
     Dates: start: 20210722, end: 20210722
  10. CITALOPRAM [Suspect]
     Active Substance: CITALOPRAM
     Route: 048
     Dates: start: 20210722, end: 20210722
  11. CITALOPRAM [Suspect]
     Active Substance: CITALOPRAM
     Route: 048
     Dates: start: 20210722, end: 20210722
  12. CITALOPRAM [Suspect]
     Active Substance: CITALOPRAM
     Dates: start: 20210722, end: 20210722
  13. FLUPENTIXOL [Suspect]
     Active Substance: FLUPENTIXOL
     Indication: Product used for unknown indication
     Dates: start: 20210722, end: 20210722
  14. FLUPENTIXOL [Suspect]
     Active Substance: FLUPENTIXOL
     Route: 048
     Dates: start: 20210722, end: 20210722
  15. FLUPENTIXOL [Suspect]
     Active Substance: FLUPENTIXOL
     Route: 048
     Dates: start: 20210722, end: 20210722
  16. FLUPENTIXOL [Suspect]
     Active Substance: FLUPENTIXOL
     Dates: start: 20210722, end: 20210722

REACTIONS (4)
  - Suicide attempt [Recovering/Resolving]
  - Toxicity to various agents [Recovering/Resolving]
  - Somnolence [Recovering/Resolving]
  - Drug abuse [Unknown]

NARRATIVE: CASE EVENT DATE: 20210722
